FAERS Safety Report 7883446-9 (Version None)
Quarter: 2011Q4

REPORT INFORMATION
  Report Type: 
  Country: None (occurrence: None)
  Receive Date: 20111102
  Receipt Date: 20111021
  Transmission Date: 20120403
  Serious: Yes (Hospitalization)
  Sender: FDA-Public Use
  Company Number: US-BAYER-2011-091602

PATIENT
  Age: 19 Year
  Sex: Female
  Weight: 88.435 kg

DRUGS (3)
  1. IBUPROFEN [Concomitant]
  2. YAZ [Suspect]
     Dosage: UNK
     Dates: start: 20060101
  3. YASMIN [Suspect]

REACTIONS (3)
  - DYSPEPSIA [None]
  - CHOLECYSTECTOMY [None]
  - CHOLECYSTITIS [None]
